FAERS Safety Report 6483865-1 (Version None)
Quarter: 2009Q4

REPORT INFORMATION
  Report Type: 
  Country: None (occurrence: None)
  Receive Date: 20091208
  Receipt Date: 20091208
  Transmission Date: 20100525
  Serious: No
  Sender: FDA-Public Use
  Company Number: None

PATIENT
  Age: 77 Year
  Sex: Male
  Weight: 81.6475 kg

DRUGS (9)
  1. COLD REMEDY ORAL MIST [Suspect]
     Dosage: Q3 HOURS 3 DAYS
     Dates: start: 20091106, end: 20091109
  2. MEVACOR [Concomitant]
  3. PERSANTINE [Concomitant]
  4. ZETIA [Concomitant]
  5. FISH OIL [Concomitant]
  6. ASCORBIC ACID [Concomitant]
  7. VITAMIN B COMPLEX CAP [Concomitant]
  8. VITAMIN B COMPLEX CAP [Concomitant]
  9. ZINC [Concomitant]

REACTIONS (1)
  - AGEUSIA [None]
